FAERS Safety Report 6862028-1 (Version None)
Quarter: 2010Q3

REPORT INFORMATION
  Report Type: 
  Country: None (occurrence: None)
  Receive Date: 20100719
  Receipt Date: 20100707
  Transmission Date: 20110219
  Serious: Yes (Other)
  Sender: FDA-Public Use
  Company Number: 015147

PATIENT
  Sex: Male

DRUGS (1)
  1. CIMZIA [Suspect]
     Indication: CROHN'S DISEASE
     Dosage: SUBCUTANEOUS
     Route: 058
     Dates: start: 20091202

REACTIONS (5)
  - COLECTOMY [None]
  - DRUG EFFECT DECREASED [None]
  - LARGE INTESTINAL HAEMORRHAGE [None]
  - MUSCLE SPASMS [None]
  - NAUSEA [None]
